FAERS Safety Report 10778990 (Version 1)
Quarter: 2015Q1

REPORT INFORMATION
  Report Type: Spontaneous
  Country: US (occurrence: None)
  Receive Date: 20150206
  Receipt Date: 20150206
  Transmission Date: 20150721
  Serious: Yes (Hospitalization)
  Sender: FDA-Public Use
  Company Number: 2014SA168484

PATIENT
  Age: 41 Year
  Sex: Female

DRUGS (4)
  1. COPAXONE [Concomitant]
     Active Substance: GLATIRAMER ACETATE
  2. AUBAGIO [Suspect]
     Active Substance: TERIFLUNOMIDE
     Indication: MULTIPLE SCLEROSIS
     Route: 048
     Dates: start: 20141124
  3. BETASERON [Concomitant]
     Active Substance: INTERFERON BETA-1B
  4. IRON [Concomitant]
     Active Substance: IRON

REACTIONS (4)
  - Diarrhoea [None]
  - Seizure [None]
  - Sinusitis [None]
  - Unevaluable event [None]
